FAERS Safety Report 18316491 (Version 3)
Quarter: 2024Q4

REPORT INFORMATION
  Report Type: Spontaneous
  Country: VN (occurrence: VN)
  Receive Date: 20200927
  Receipt Date: 20241115
  Transmission Date: 20250115
  Serious: Yes (Death)
  Sender: ROCHE
  Company Number: VN-ROCHE-2684071

PATIENT
  Age: 67 Year
  Sex: Male

DRUGS (4)
  1. TECENTRIQ [Suspect]
     Active Substance: ATEZOLIZUMAB
     Indication: Non-small cell lung cancer
     Route: 042
     Dates: start: 2019
  2. TECENTRIQ [Suspect]
     Active Substance: ATEZOLIZUMAB
     Indication: Adenocarcinoma metastatic
  3. PACLITAXEL [Concomitant]
     Active Substance: PACLITAXEL
  4. NAVELBINE [Concomitant]
     Active Substance: VINORELBINE TARTRATE

REACTIONS (4)
  - Coma [Fatal]
  - Respiratory failure [Fatal]
  - Asthenia [Fatal]
  - Oxygen saturation decreased [Fatal]
